FAERS Safety Report 25418621 (Version 1)
Quarter: 2025Q2

REPORT INFORMATION
  Report Type: Spontaneous
  Country: PE (occurrence: PE)
  Receive Date: 20250610
  Receipt Date: 20250610
  Transmission Date: 20250716
  Serious: Yes (Other)
  Sender: INSUD PHARMA
  Company Number: PE-INSUD PHARMA-2505PE04297

PATIENT

DRUGS (7)
  1. NUVESSA [Suspect]
     Active Substance: METRONIDAZOLE
     Indication: Brain abscess
     Dosage: 500 MILLIGRAM, EVERY 8 HOURS
     Route: 042
  2. CEFTRIAXONE [Concomitant]
     Active Substance: CEFTRIAXONE
     Indication: Brain abscess
     Dosage: 2 GRAM, EVERY 12 HOURS
     Route: 042
  3. VANCOMYCIN [Concomitant]
     Active Substance: VANCOMYCIN
     Indication: Brain abscess
     Route: 042
  4. VANCOMYCIN [Concomitant]
     Active Substance: VANCOMYCIN
     Dosage: 1 GRAM EVERY 12 HOURS, MAINTENANCE
     Route: 042
  5. ATENOLOL [Concomitant]
     Active Substance: ATENOLOL
  6. ASPIRIN [Concomitant]
     Active Substance: ASPIRIN
  7. LOSARTAN [Concomitant]
     Active Substance: LOSARTAN

REACTIONS (10)
  - Neurotoxicity [Recovering/Resolving]
  - Generalised tonic-clonic seizure [Recovering/Resolving]
  - Postictal state [Recovering/Resolving]
  - Dysstasia [Recovering/Resolving]
  - Ataxia [Recovered/Resolved]
  - Sensory disturbance [Recovered/Resolved]
  - Dysdiadochokinesis [Unknown]
  - Dysmetria [Recovering/Resolving]
  - Hyperreflexia [Unknown]
  - Nausea [Unknown]
